FAERS Safety Report 6528261-3 (Version None)
Quarter: 2010Q1

REPORT INFORMATION
  Report Type: 
  Country: None (occurrence: None)
  Receive Date: 20100106
  Receipt Date: 20091228
  Transmission Date: 20100710
  Serious: Yes (Hospitalization)
  Sender: FDA-Public Use
  Company Number: US-ASTRAZENECA-2009SE33653

PATIENT
  Age: 26 Year
  Sex: Female
  Weight: 54.4 kg

DRUGS (3)
  1. SEROQUEL [Suspect]
     Indication: SLEEP DISORDER
     Route: 048
     Dates: start: 20091017, end: 20091029
  2. PENICILLIN VK [Concomitant]
     Indication: SINUSITIS
     Route: 048
     Dates: start: 20091015, end: 20091019
  3. DIVALPROEX SODIUM [Concomitant]
     Indication: DEPRESSION
     Route: 048
     Dates: start: 20070101, end: 20091029

REACTIONS (4)
  - CHEST PAIN [None]
  - DIZZINESS [None]
  - HYPOAESTHESIA [None]
  - NAUSEA [None]
